FAERS Safety Report 9125490 (Version 1)
Quarter: 2013Q1

REPORT INFORMATION
  Report Type: Spontaneous
  Country: FR (occurrence: FR)
  Receive Date: 20130227
  Receipt Date: 20130227
  Transmission Date: 20140127
  Serious: Yes (Hospitalization)
  Sender: FDA-Public Use
  Company Number: FR-GLAXOSMITHKLINE-B0869558A

PATIENT
  Age: 69 Year
  Sex: Female

DRUGS (16)
  1. AUGMENTIN [Suspect]
     Indication: LUNG DISORDER
     Route: 065
     Dates: start: 20130131, end: 20130204
  2. LAMICTAL [Suspect]
     Indication: EPILEPSY
     Dosage: 25MG PER DAY
     Route: 065
     Dates: start: 20130130
  3. LOVENOX [Suspect]
     Indication: PRODUCT USED FOR UNKNOWN INDICATION
     Route: 065
     Dates: start: 20130131
  4. PLAVIX [Concomitant]
     Route: 065
  5. COOLMETEC [Concomitant]
     Route: 065
  6. PARIET [Concomitant]
     Route: 065
  7. TANAKAN [Concomitant]
     Route: 065
  8. BETASERC [Concomitant]
     Route: 065
  9. AMAREL [Concomitant]
     Route: 065
  10. SPASMINE [Concomitant]
     Route: 065
  11. VASTAREL [Concomitant]
     Route: 065
  12. TANGANIL [Concomitant]
     Route: 065
  13. TOPALGIC (FRANCE) [Concomitant]
     Route: 065
  14. PARACETAMOL [Concomitant]
     Route: 065
  15. URBANYL [Concomitant]
     Indication: EPILEPSY
     Route: 065
     Dates: start: 20130130, end: 20130130
  16. LOXEN [Concomitant]
     Route: 065
     Dates: start: 201301

REACTIONS (5)
  - Erythema [Recovered/Resolved]
  - Swelling face [Recovered/Resolved]
  - Pruritus [Recovered/Resolved]
  - Rash [Recovered/Resolved]
  - Hyperthermia [Unknown]
